FAERS Safety Report 5962548-8 (Version None)
Quarter: 2008Q4

REPORT INFORMATION
  Report Type: 
  Country: None (occurrence: None)
  Receive Date: 20081121
  Receipt Date: 20081117
  Transmission Date: 20090506
  Serious: Yes (Death)
  Sender: FDA-Public Use
  Company Number: PHHY2008GB28477

PATIENT
  Sex: Male

DRUGS (3)
  1. CLOZARIL [Suspect]
     Indication: SCHIZOPHRENIA
     Dosage: UNK
     Dates: start: 20020401
  2. CLOZARIL [Suspect]
     Dosage: UNK
     Dates: start: 20030301
  3. CLOZARIL [Suspect]
     Dosage: UNK
     Dates: start: 20080923

REACTIONS (1)
  - DEATH [None]
